FAERS Safety Report 18249090 (Version 1)
Quarter: 2020Q3

REPORT INFORMATION
  Report Type: Report from Study
  Country: None (occurrence: LB)
  Receive Date: 20200909
  Receipt Date: 20200909
  Transmission Date: 20201103
  Serious: Yes (Death, Hospitalization, Other)
  Sender: FDA-Public Use
  Company Number: LB-ABBVIE-20K-093-3394539-00

PATIENT
  Age: 66 Year
  Sex: Male

DRUGS (1)
  1. HUMIRA [Suspect]
     Active Substance: ADALIMUMAB
     Indication: COLITIS ULCERATIVE
     Dosage: LOADING DOSE
     Route: 058
     Dates: start: 20200406, end: 20200406

REACTIONS (4)
  - General physical health deterioration [Fatal]
  - Cerebrovascular accident [Fatal]
  - Lethargy [Fatal]
  - Amnesia [Fatal]

NARRATIVE: CASE EVENT DATE: 202004
